FAERS Safety Report 5199896-8 (Version None)
Quarter: 2007Q1

REPORT INFORMATION
  Report Type: 
  Country: None (occurrence: None)
  Receive Date: 20070102
  Receipt Date: 20070102
  Transmission Date: 20070707
  Serious: Yes (Other)
  Sender: FDA-Public Use
  Company Number: None

PATIENT
  Age: 38 Year
  Sex: Female
  Weight: 87.5442 kg

DRUGS (2)
  1. LEVAQUIN [Suspect]
     Indication: DIARRHOEA
     Dosage: 1 PILL   ONCE A DAY   PO
     Route: 048
     Dates: start: 20061220, end: 20061224
  2. LEVAQUIN [Suspect]
     Indication: GASTROENTERITIS VIRAL
     Dosage: 1 PILL   ONCE A DAY   PO
     Route: 048
     Dates: start: 20061220, end: 20061224

REACTIONS (6)
  - ANOREXIA [None]
  - ANXIETY [None]
  - CONSTIPATION [None]
  - DEPRESSION [None]
  - INSOMNIA [None]
  - PARAESTHESIA [None]
